FAERS Safety Report 11093818 (Version 2)
Quarter: 2015Q4

REPORT INFORMATION
  Report Type: Spontaneous
  Country: US (occurrence: US)
  Receive Date: 20150506
  Receipt Date: 20151030
  Transmission Date: 20160304
  Serious: Yes (Hospitalization, Disabling, Other)
  Sender: FDA-Public Use
  Company Number: US-PFIZER INC-2015153669

PATIENT
  Age: 41 Year
  Sex: Female

DRUGS (2)
  1. LIPITOR [Suspect]
     Active Substance: ATORVASTATIN CALCIUM
     Indication: HYPERLIPIDAEMIA
     Dosage: UNK, AS DIRECTED
     Route: 048
     Dates: start: 200107, end: 200704
  2. LIPITOR [Suspect]
     Active Substance: ATORVASTATIN CALCIUM
     Indication: HYPERTENSION
     Dosage: 10 MG, DAILY
     Route: 048
     Dates: start: 200107, end: 200703

REACTIONS (29)
  - Cellulitis [Unknown]
  - Osteomyelitis [Unknown]
  - Tachycardia [Unknown]
  - Leukocytosis [Unknown]
  - Tendonitis [Not Recovered/Not Resolved]
  - Sepsis [Unknown]
  - Renal failure [Unknown]
  - Lymphadenopathy [Unknown]
  - Neuropathic arthropathy [Not Recovered/Not Resolved]
  - Foot deformity [Unknown]
  - Diabetic neuropathy [Not Recovered/Not Resolved]
  - Fatigue [Unknown]
  - Diabetic foot [Unknown]
  - Impaired healing [Unknown]
  - Diabetic ketoacidosis [Unknown]
  - Anaemia [Unknown]
  - Staphylococcal infection [Unknown]
  - Diabetic foot [Unknown]
  - Hypoglycaemia [Unknown]
  - Malaise [Unknown]
  - Myalgia [Not Recovered/Not Resolved]
  - Abscess limb [Unknown]
  - Peripheral arterial occlusive disease [Not Recovered/Not Resolved]
  - Hyperkeratosis [Unknown]
  - Hyperosmolar hyperglycaemic state [Unknown]
  - Type 2 diabetes mellitus [Not Recovered/Not Resolved]
  - Diabetic nephropathy [Not Recovered/Not Resolved]
  - Exostosis [Not Recovered/Not Resolved]
  - Eczema [Unknown]

NARRATIVE: CASE EVENT DATE: 200408
